FAERS Safety Report 5923110-6 (Version None)
Quarter: 2008Q4

REPORT INFORMATION
  Report Type: 
  Country: None (occurrence: None)
  Receive Date: 20081018
  Receipt Date: 20081007
  Transmission Date: 20090506
  Serious: Yes (Other)
  Sender: FDA-Public Use
  Company Number: US-PFIZER INC-2008085441

PATIENT
  Sex: Male
  Weight: 104.3 kg

DRUGS (2)
  1. LYRICA [Suspect]
     Indication: PAIN
     Dates: start: 20081001, end: 20081002
  2. IBUPROFEN [Suspect]
     Indication: HEADACHE
     Dates: start: 20030101

REACTIONS (4)
  - INTERVERTEBRAL DISC PROTRUSION [None]
  - ROAD TRAFFIC ACCIDENT [None]
  - SPINAL FRACTURE [None]
  - SWOLLEN TONGUE [None]
